FAERS Safety Report 7797650-1 (Version None)
Quarter: 2011Q4

REPORT INFORMATION
  Report Type: 
  Country: None (occurrence: None)
  Receive Date: 20111003
  Receipt Date: 20110823
  Transmission Date: 20120403
  Serious: Yes (Disabling)
  Sender: FDA-Public Use
  Company Number: JP-1187532

PATIENT
  Age: 62 Year
  Sex: Male

DRUGS (3)
  1. EPINEPHRINE [Suspect]
     Indication: CATARACT OPERATION
     Dosage: (0.8 ML INTRAOCULAR)
     Route: 031
     Dates: start: 20110809, end: 20110809
  2. OPEGAN HI (OPEGAN HI) (NOT SPECIFIED) [Suspect]
     Indication: CATARACT OPERATION
     Dosage: (1 ML INTRAOCULAR)
     Route: 031
     Dates: start: 20110809, end: 20110809
  3. BSS PLUS [Suspect]
     Indication: CATARACT OPERATION
     Dosage: (150 ML INTRAOCULAR)
     Route: 031
     Dates: start: 20110809, end: 20110809

REACTIONS (4)
  - EYELID OEDEMA [None]
  - CORNEAL DISORDER [None]
  - CORNEAL OPACITY [None]
  - CORNEAL ABRASION [None]
